FAERS Safety Report 10181050 (Version 2)
Quarter: 2014Q2

REPORT INFORMATION
  Report Type: Spontaneous
  Country: US (occurrence: US)
  Receive Date: 20140519
  Receipt Date: 20140519
  Transmission Date: 20141212
  Serious: No
  Sender: FDA-Public Use
  Company Number: US-AMGEN INC.-USASP2014012265

PATIENT
  Age: 92 Year
  Sex: Female

DRUGS (11)
  1. PROLIA [Suspect]
     Indication: OSTEOPOROSIS POSTMENOPAUSAL
     Dosage: UNK
     Route: 065
  2. OXYBUTYNIN [Concomitant]
     Dosage: UNK
     Route: 065
  3. CENTRUM SILVER                     /02363801/ [Concomitant]
     Dosage: 1 DAILY
     Route: 065
  4. FISH OIL [Concomitant]
     Dosage: UNK
     Route: 065
  5. RED YEAST RICE [Concomitant]
     Dosage: UNK
     Route: 065
  6. COQ10                              /00517201/ [Concomitant]
     Dosage: 600 MG, UNK
     Route: 065
  7. GLUCOSAMINE CHONDROITIN            /01430901/ [Concomitant]
     Dosage: 1500MG/2000 MG
     Route: 065
  8. B12                                /00056201/ [Concomitant]
     Dosage: UNK
     Route: 065
  9. OCUVITE                            /01053801/ [Concomitant]
     Dosage: UNK
     Route: 065
  10. VITAMIN D                          /00107901/ [Concomitant]
     Dosage: 1000 IU, QD
     Route: 065
  11. CALCIUM WITH VITAMIN D             /00944201/ [Concomitant]
     Dosage: UNK
     Route: 065

REACTIONS (1)
  - Vitamin D decreased [Unknown]
